FAERS Safety Report 24145134 (Version 2)
Quarter: 2024Q3

REPORT INFORMATION
  Report Type: Spontaneous
  Country: JP (occurrence: JP)
  Receive Date: 20240729
  Receipt Date: 20240801
  Transmission Date: 20241017
  Serious: Yes (Other)
  Sender: MERCK
  Company Number: JP-MERCK-1002USA01815

PATIENT
  Age: 32 Year
  Sex: Female
  Weight: 42 kg

DRUGS (10)
  1. EMEND [Suspect]
     Active Substance: APREPITANT
     Indication: Prophylaxis of nausea and vomiting
     Dosage: 125 MG - 80 MG
     Route: 048
     Dates: start: 20100130, end: 20100203
  2. SITAGLIPTIN [Suspect]
     Active Substance: SITAGLIPTIN
     Indication: Type 2 diabetes mellitus
     Dosage: UNK
     Route: 048
  3. TEMODAL [Concomitant]
     Active Substance: TEMOZOLOMIDE
     Indication: Malignant glioma
     Dosage: 280 MG, EVERYDAY
     Route: 048
     Dates: start: 20100130, end: 20100203
  4. METOCLOPRAMIDE HYDROCHLORIDE [Concomitant]
     Active Substance: METOCLOPRAMIDE HYDROCHLORIDE
     Indication: Prophylaxis of nausea and vomiting
     Dosage: 5 DF, EVERYDAY
     Route: 048
     Dates: start: 20100130, end: 20100203
  5. BIFIDOBACTERIUM SPP. [Concomitant]
     Active Substance: BIFIDOBACTERIUM SPP.
     Indication: Dysbiosis
     Dosage: 1 G, Q8H
     Route: 048
     Dates: start: 20100130, end: 20100203
  6. ZONISAMIDE [Concomitant]
     Active Substance: ZONISAMIDE
     Indication: Epilepsy
     Dosage: 100 MG, Q12H
     Route: 048
     Dates: start: 20100130, end: 20100203
  7. ZOLPIDEM TARTRATE [Concomitant]
     Active Substance: ZOLPIDEM TARTRATE
     Indication: Insomnia
     Dosage: 5 MG, EVERYDAY
     Route: 048
     Dates: start: 20100130, end: 20100203
  8. VALPROATE SODIUM [Concomitant]
     Active Substance: VALPROATE SODIUM
     Indication: Epilepsy
     Dosage: 400 MG, EVERYDAY
     Route: 048
     Dates: start: 20100130, end: 20100203
  9. ETIZOLAM [Concomitant]
     Active Substance: ETIZOLAM
     Indication: Sleep disorder
     Dosage: 1 MG, EVERYDAY
     Route: 048
     Dates: start: 20100130, end: 20100203
  10. ZOFRAN [Concomitant]
     Active Substance: ONDANSETRON HYDROCHLORIDE
     Indication: Prophylaxis of nausea and vomiting
     Dosage: 4 MG, EVERYDAY
     Route: 048
     Dates: start: 20100130, end: 20100203

REACTIONS (3)
  - Hallucination [Recovered/Resolved]
  - Drug interaction [Unknown]
  - Incorrect product administration duration [Unknown]

NARRATIVE: CASE EVENT DATE: 20100130
